FAERS Safety Report 16548960 (Version 1)
Quarter: 2019Q3

REPORT INFORMATION
  Report Type: Spontaneous
  Country: US (occurrence: US)
  Receive Date: 20190709
  Receipt Date: 20190709
  Transmission Date: 20191004
  Serious: No
  Sender: FDA-Public Use
  Company Number: US-009507513-1907USA004285

PATIENT
  Age: 85 Year
  Sex: Male

DRUGS (6)
  1. NUPLAZID [Suspect]
     Active Substance: PIMAVANSERIN TARTRATE
     Indication: DELUSION
  2. XARELTO [Concomitant]
     Active Substance: RIVAROXABAN
  3. SINEMET [Suspect]
     Active Substance: CARBIDOPA\LEVODOPA
     Indication: PRODUCT USED FOR UNKNOWN INDICATION
     Dosage: 2.5 DOSAGE FORM, THREE TIMES DAILY
     Route: 048
  4. NUPLAZID [Suspect]
     Active Substance: PIMAVANSERIN TARTRATE
     Indication: HALLUCINATION
  5. ATORVASTATIN CALCIUM. [Concomitant]
     Active Substance: ATORVASTATIN CALCIUM
  6. NUPLAZID [Suspect]
     Active Substance: PIMAVANSERIN TARTRATE
     Indication: PARKINSON^S DISEASE PSYCHOSIS
     Dosage: 34 MILLIGRAM, QD
     Route: 048
     Dates: start: 201906, end: 20190623

REACTIONS (7)
  - Gait disturbance [Not Recovered/Not Resolved]
  - Feeling abnormal [Unknown]
  - Malaise [Recovered/Resolved]
  - Drug intolerance [Recovered/Resolved]
  - Balance disorder [Not Recovered/Not Resolved]
  - Hallucination, visual [Recovered/Resolved]
  - Constipation [Recovered/Resolved]

NARRATIVE: CASE EVENT DATE: 201906
